FAERS Safety Report 6506639-1 (Version None)
Quarter: 2009Q4

REPORT INFORMATION
  Report Type: 
  Country: None (occurrence: None)
  Receive Date: 20091221
  Receipt Date: 20091214
  Transmission Date: 20100525
  Serious: Yes (Hospitalization)
  Sender: FDA-Public Use
  Company Number: DE-AMGEN-UK236285

PATIENT
  Age: 71 Year
  Sex: Female
  Weight: 61.5 kg

DRUGS (10)
  1. ARANESP [Suspect]
     Indication: RENAL FAILURE CHRONIC
     Route: 042
     Dates: start: 20051027
  2. ANTIHYPERTENSIVES [Concomitant]
  3. VITAMIN B COMPLEX CAP [Concomitant]
  4. ASCORBIC ACID [Concomitant]
  5. INSULIN [Concomitant]
  6. CALCITRIOL [Concomitant]
  7. CALCIUM ACETATE [Concomitant]
  8. UNSPECIFIED VITAMINS [Concomitant]
  9. METOPROLOL TARTRATE [Concomitant]
  10. FRUSEMIDE [Concomitant]

REACTIONS (1)
  - SHUNT OCCLUSION [None]
